FAERS Safety Report 7092238-2 (Version None)
Quarter: 2010Q4

REPORT INFORMATION
  Report Type: 
  Country: None (occurrence: None)
  Receive Date: 20101109
  Receipt Date: 20101109
  Transmission Date: 20110411
  Serious: Yes (Hospitalization)
  Sender: FDA-Public Use
  Company Number: US-ABBOTT-10P-163-0682200-00

PATIENT
  Sex: Female
  Weight: 68.1 kg

DRUGS (5)
  1. HUMIRA [Suspect]
     Indication: RHEUMATOID ARTHRITIS
     Dates: start: 20070101
  2. PAXIL [Concomitant]
     Indication: ANXIETY
  3. GENERIC ZOCOR [Concomitant]
     Indication: BLOOD CHOLESTEROL INCREASED
  4. SPIRIVA [Concomitant]
     Indication: CHRONIC OBSTRUCTIVE PULMONARY DISEASE
     Dosage: 1 PUFF Q DAY
  5. SYMBICORT [Concomitant]
     Indication: CHRONIC OBSTRUCTIVE PULMONARY DISEASE
     Dosage: 160/4.5 MILLIGRAMS: 4 TIMES PER DAY

REACTIONS (6)
  - AORTIC ANEURYSM [None]
  - ARTERIAL STENOSIS LIMB [None]
  - ARTHRALGIA [None]
  - DRUG DOSE OMISSION [None]
  - INJECTION SITE PAIN [None]
  - SKIN BURNING SENSATION [None]
